FAERS Safety Report 13706160 (Version 1)
Quarter: 2017Q2

REPORT INFORMATION
  Report Type: Spontaneous
  Country: US (occurrence: ZA)
  Receive Date: 20170630
  Receipt Date: 20170630
  Transmission Date: 20170830
  Serious: Yes (Hospitalization)
  Sender: FDA-Public Use
  Company Number: ZA-TEVA-781279ISR

PATIENT
  Age: 39 Year
  Sex: Male
  Weight: 44 kg

DRUGS (16)
  1. ETHIONAMIDE [Suspect]
     Active Substance: ETHIONAMIDE
     Dates: start: 20151201, end: 20151207
  2. MOXIFLOXACIN. [Concomitant]
     Active Substance: MOXIFLOXACIN
     Route: 065
  3. ETHAMBUTOL [Suspect]
     Active Substance: ETHAMBUTOL HYDROCHLORIDE
     Route: 048
     Dates: start: 2014
  4. CLOFAZIMINE [Suspect]
     Active Substance: CLOFAZIMINE
     Indication: TUBERCULOSIS
     Dosage: 100 MILLIGRAM DAILY;
     Route: 048
     Dates: start: 20160126, end: 20160130
  5. TERIZIDONE [Suspect]
     Active Substance: TERIZIDONE
     Indication: TUBERCULOSIS
     Dosage: 750 MILLIGRAM DAILY;
     Route: 048
     Dates: start: 20160128, end: 20160128
  6. TERIZIDONE [Suspect]
     Active Substance: TERIZIDONE
     Route: 048
     Dates: start: 20150112
  7. ORPHENADRINE [Concomitant]
     Active Substance: ORPHENADRINE
     Indication: MUSCLE RELAXANT THERAPY
     Route: 065
  8. ETHAMBUTOL [Suspect]
     Active Substance: ETHAMBUTOL HYDROCHLORIDE
     Indication: TUBERCULOSIS
     Dosage: 800 MILLIGRAM DAILY;
     Route: 048
     Dates: start: 20160126, end: 20160130
  9. ISONIAZID. [Suspect]
     Active Substance: ISONIAZID
     Route: 048
     Dates: start: 2014, end: 2016
  10. PYRAZINAMIDE. [Suspect]
     Active Substance: PYRAZINAMIDE
     Indication: TUBERCULOSIS
     Dosage: 1500 MILLIGRAM DAILY;
     Route: 048
     Dates: start: 20160126, end: 20160130
  11. LINEZOLID. [Suspect]
     Active Substance: LINEZOLID
     Indication: TUBERCULOSIS
     Dosage: 600 MILLIGRAM DAILY;
     Route: 048
     Dates: start: 20160126, end: 20160130
  12. ETHAMBUTOL [Suspect]
     Active Substance: ETHAMBUTOL HYDROCHLORIDE
     Dosage: 750 MILLIGRAM DAILY;
     Route: 048
     Dates: start: 20160113, end: 2016
  13. ETHIONAMIDE [Suspect]
     Active Substance: ETHIONAMIDE
     Indication: TUBERCULOSIS
     Route: 065
  14. LEVOFLOXACIN. [Suspect]
     Active Substance: LEVOFLOXACIN
     Indication: TUBERCULOSIS
     Dosage: 1000 MILLIGRAM DAILY;
     Route: 048
     Dates: start: 20160126, end: 20160130
  15. ISONIAZID. [Suspect]
     Active Substance: ISONIAZID
     Indication: TUBERCULOSIS
     Dosage: 900 MILLIGRAM DAILY;
     Route: 048
     Dates: start: 20160126, end: 20160128
  16. BEDAQUILINE [Suspect]
     Active Substance: BEDAQUILINE
     Indication: TUBERCULOSIS
     Dosage: 400 MILLIGRAM DAILY;
     Route: 048
     Dates: start: 20160126, end: 20160130

REACTIONS (1)
  - Psychotic disorder [Recovered/Resolved with Sequelae]

NARRATIVE: CASE EVENT DATE: 20160128
